FAERS Safety Report 5582819-7 (Version None)
Quarter: 2007Q4

REPORT INFORMATION
  Report Type: 
  Country: None (occurrence: None)
  Receive Date: 20071231
  Receipt Date: 20071218
  Transmission Date: 20080405
  Serious: Yes (Hospitalization)
  Sender: FDA-Public Use
  Company Number: 2007AL005479

PATIENT
  Age: 58 Year
  Sex: Male
  Weight: 130 kg

DRUGS (12)
  1. CITALOPRAM HYDROBROMIDE [Suspect]
     Dosage: 40 MG; QD; PO
     Route: 048
     Dates: start: 20060101, end: 20071205
  2. TRAMADOL HCL [Suspect]
     Dosage: 100 MG; PRN; PO
     Route: 048
     Dates: start: 20060101, end: 20071205
  3. BENDROFLUMETHIAZIDE [Concomitant]
  4. VITAMIN B COMPLEX CAP [Concomitant]
  5. THIAMINE [Concomitant]
  6. FUROSEMIDE [Concomitant]
  7. MOXIFLOXACIN HCL [Concomitant]
  8. FLOMAX [Concomitant]
  9. CANDESARTAN CILEXETIL [Concomitant]
  10. ETORICOXIB [Concomitant]
  11. FELODIPINE [Concomitant]
  12. PARACETAMOL [Concomitant]

REACTIONS (6)
  - AGITATION [None]
  - DIARRHOEA [None]
  - MUSCLE TWITCHING [None]
  - PAIN IN EXTREMITY [None]
  - PEAU D'ORANGE [None]
  - SEROTONIN SYNDROME [None]
